FAERS Safety Report 6445771-8 (Version None)
Quarter: 2009Q4

REPORT INFORMATION
  Report Type: 
  Country: None (occurrence: None)
  Receive Date: 20091119
  Receipt Date: 20091109
  Transmission Date: 20100525
  Serious: Yes (Hospitalization)
  Sender: FDA-Public Use
  Company Number: GB-RANBAXY-2009RR-28719

PATIENT
  Age: 48 Year
  Sex: Male

DRUGS (4)
  1. PARACETAMOL [Suspect]
     Indication: DRUG USE FOR UNKNOWN INDICATION
     Dosage: 24000 MG, UNK
     Route: 048
     Dates: start: 20090405, end: 20090405
  2. CLOZARIL [Suspect]
     Indication: DRUG USE FOR UNKNOWN INDICATION
     Dosage: 15 DF, UNK
     Route: 048
     Dates: start: 20090405, end: 20090405
  3. CLOZARIL [Suspect]
     Dosage: UNK
     Route: 048
     Dates: start: 20080606, end: 20090401
  4. CLOZARIL [Suspect]
     Dosage: 12.5 MG, UNK
     Route: 048
     Dates: start: 20090407

REACTIONS (1)
  - MULTIPLE DRUG OVERDOSE [None]
